FAERS Safety Report 20424946 (Version 1)
Quarter: 2022Q1

REPORT INFORMATION
  Report Type: Report from Study
  Country: US (occurrence: US)
  Receive Date: 20220204
  Receipt Date: 20220204
  Transmission Date: 20220423
  Serious: No
  Sender: FDA-Public Use
  Company Number: US-EXELIXIS-CABO-20036334

PATIENT
  Sex: Male

DRUGS (1)
  1. CABOMETYX [Suspect]
     Active Substance: CABOZANTINIB S-MALATE
     Indication: Renal cell carcinoma
     Dosage: 60 MG, AROUND 9 AM WITHOUT FOOD
     Dates: start: 20201127

REACTIONS (9)
  - Skin irritation [Unknown]
  - Skin fissures [Unknown]
  - Skin erosion [Unknown]
  - Oral pain [Unknown]
  - Rash [Recovered/Resolved]
  - Diarrhoea [Recovered/Resolved]
  - Dyspepsia [Unknown]
  - Decreased appetite [Unknown]
  - Constipation [Unknown]
